FAERS Safety Report 19153092 (Version 2)
Quarter: 2021Q2

REPORT INFORMATION
  Report Type: Report from Study
  Country: CL (occurrence: CL)
  Receive Date: 20210419
  Receipt Date: 20210507
  Transmission Date: 20210717
  Serious: Yes (Other)
  Sender: FDA-Public Use
  Company Number: NVSC2021CL085892

PATIENT
  Age: 8 Year
  Sex: Female
  Weight: 31 kg

DRUGS (1)
  1. OMNITROPE [Suspect]
     Active Substance: SOMATROPIN
     Indication: BODY HEIGHT DECREASED
     Dosage: UNK UNK, QD (10 MG/1.5ML/1MG)
     Route: 058

REACTIONS (3)
  - Hyperhidrosis [Unknown]
  - Chromaturia [Unknown]
  - Urinary retention [Unknown]

NARRATIVE: CASE EVENT DATE: 20210222
